FAERS Safety Report 25778081 (Version 1)
Quarter: 2025Q3

REPORT INFORMATION
  Report Type: Spontaneous
  Country: YE (occurrence: YE)
  Receive Date: 20250909
  Receipt Date: 20250909
  Transmission Date: 20251021
  Serious: Yes (Other)
  Sender: RANBAXY
  Company Number: YE-SUN PHARMACEUTICAL INDUSTRIES LTD-2025R1-525972

PATIENT
  Age: 28 Year
  Sex: Female

DRUGS (1)
  1. DEXAMETHASONE [Suspect]
     Active Substance: DEXAMETHASONE
     Indication: Weight increased
     Route: 065

REACTIONS (2)
  - Drug abuse [Unknown]
  - Cortisol decreased [Unknown]
